FAERS Safety Report 12661824 (Version 7)
Quarter: 2018Q1

REPORT INFORMATION
  Report Type: Spontaneous
  Country: US (occurrence: US)
  Receive Date: 20160817
  Receipt Date: 20180206
  Transmission Date: 20180508
  Serious: Yes (Congenital Anomaly, Other)
  Sender: FDA-Public Use
  Company Number: PHHY2015US131760

PATIENT
  Sex: Male

DRUGS (2)
  1. ZOFRAN [Suspect]
     Active Substance: ONDANSETRON HYDROCHLORIDE
     Indication: FOETAL EXPOSURE DURING PREGNANCY
     Route: 064
  2. ZOFRAN [Suspect]
     Active Substance: ONDANSETRON HYDROCHLORIDE
     Indication: FOETAL EXPOSURE DURING PREGNANCY
     Dosage: MOTHER DOSE: 04 MG, UNK
     Route: 064

REACTIONS (17)
  - Ventricular septal defect [Unknown]
  - Otitis media acute [Unknown]
  - Cough [Unknown]
  - Cerumen impaction [Unknown]
  - Upper respiratory tract infection [Unknown]
  - Deafness [Unknown]
  - Oral candidiasis [Unknown]
  - Myopia [Unknown]
  - Cardiac murmur [Unknown]
  - Foetal exposure during pregnancy [Unknown]
  - Pyrexia [Unknown]
  - Palpitations [Unknown]
  - Eyelid ptosis congenital [Unknown]
  - Heart disease congenital [Unknown]
  - Thalassaemia alpha [Unknown]
  - Chronic sinusitis [Unknown]
  - Ear infection [Unknown]
